FAERS Safety Report 11791520 (Version 2)
Quarter: 2015Q4

REPORT INFORMATION
  Report Type: Spontaneous
  Country: BR (occurrence: BR)
  Receive Date: 20151201
  Receipt Date: 20151218
  Transmission Date: 20160305
  Serious: Yes (Death, Hospitalization, Disabling, Other)
  Sender: FDA-Public Use
  Company Number: BR-ABBVIE-15P-020-1511388-00

PATIENT
  Sex: Female
  Weight: 90 kg

DRUGS (2)
  1. DEPAKENE [Suspect]
     Active Substance: VALPROIC ACID
     Indication: SEIZURE
     Route: 065
  2. DEPAKENE [Suspect]
     Active Substance: VALPROIC ACID
     Route: 050

REACTIONS (12)
  - Pulmonary embolism [Fatal]
  - Muscle atrophy [Unknown]
  - Hand fracture [Unknown]
  - Lower limb fracture [Unknown]
  - Fall [Unknown]
  - Faecal incontinence [Unknown]
  - Pertussis [Unknown]
  - Abasia [Unknown]
  - Seizure [Unknown]
  - Urinary incontinence [Unknown]
  - Dysstasia [Unknown]
  - Wrong technique in product usage process [Unknown]

NARRATIVE: CASE EVENT DATE: 2012
